FAERS Safety Report 8175956-4 (Version None)
Quarter: 2012Q1

REPORT INFORMATION
  Report Type: 
  Country: None (occurrence: None)
  Receive Date: 20120301
  Receipt Date: 20120227
  Transmission Date: 20120608
  Serious: No
  Sender: FDA-Public Use
  Company Number: US-PFIZER INC-2012052617

PATIENT
  Sex: Male
  Weight: 89.796 kg

DRUGS (2)
  1. NORVASC [Suspect]
     Indication: HYPERTENSION
     Dosage: 10 MG, DAILY
     Dates: start: 20111201
  2. ATENOLOL [Concomitant]
     Dosage: UNK

REACTIONS (2)
  - HEADACHE [None]
  - BLOOD CHOLESTEROL INCREASED [None]
